FAERS Safety Report 9365410 (Version 1)
Quarter: 2013Q2

REPORT INFORMATION
  Report Type: Spontaneous
  Country: US (occurrence: None)
  Receive Date: 20130624
  Receipt Date: 20130624
  Transmission Date: 20140414
  Serious: Yes (Other)
  Sender: FDA-Public Use
  Company Number: None

PATIENT
  Age: 58 Year
  Sex: Female

DRUGS (1)
  1. TB SKIN TEST [Suspect]
     Indication: TUBERCULIN TEST
     Dates: start: 20130610, end: 20130612

REACTIONS (2)
  - Local swelling [None]
  - Hypersensitivity [None]
